FAERS Safety Report 10460948 (Version 2)
Quarter: 2014Q4

REPORT INFORMATION
  Report Type: Spontaneous
  Country: US (occurrence: None)
  Receive Date: 20140904
  Receipt Date: 20141020
  Transmission Date: 20150528
  Serious: Yes (Life-Threatening, Hospitalization, Other)
  Sender: FDA-Public Use
  Company Number: 003-228

PATIENT
  Age: 50 Year
  Sex: Male

DRUGS (1)
  1. CROFAB [Suspect]
     Active Substance: CROTALIDAE POLYVALENT IMMUNE FAB (OVINE)
     Indication: SNAKE BITE
     Dates: start: 20140820

REACTIONS (9)
  - Platelet count decreased [None]
  - Coagulopathy [None]
  - Hypotension [None]
  - Anaphylactoid reaction [None]
  - Prothrombin time prolonged [None]
  - Blood fibrinogen decreased [None]
  - Erythema [None]
  - Swelling [None]
  - International normalised ratio increased [None]

NARRATIVE: CASE EVENT DATE: 20140820
